FAERS Safety Report 23338260 (Version 2)
Quarter: 2024Q2

REPORT INFORMATION
  Report Type: Spontaneous
  Country: SK (occurrence: SK)
  Receive Date: 20231226
  Receipt Date: 20240528
  Transmission Date: 20240716
  Serious: Yes (Hospitalization, Other)
  Sender: FDA-Public Use
  Company Number: SK-BAYER-2019-221377

PATIENT
  Age: 26 Year
  Sex: Male

DRUGS (4)
  1. CLENBUTEROL [Suspect]
     Active Substance: CLENBUTEROL
     Indication: Muscle hypertrophy
     Route: 065
  2. SOMATROPIN [Suspect]
     Active Substance: SOMATROPIN
     Indication: Off label use
     Dosage: UNK
     Route: 065
  3. SOMATROPIN [Suspect]
     Active Substance: SOMATROPIN
     Indication: Muscle hypertrophy
     Dosage: UNK
     Route: 065
  4. TESTOSTERONE [Suspect]
     Active Substance: TESTOSTERONE
     Indication: Muscle mass
     Route: 065

REACTIONS (7)
  - Secondary hypertension [Recovered/Resolved]
  - Phaeochromocytoma [Recovered/Resolved]
  - Hepatomegaly [Unknown]
  - Tachycardia [Unknown]
  - Drug abuse [Recovered/Resolved]
  - Hepatomegaly [Unknown]
  - Intentional product misuse [Recovered/Resolved]

NARRATIVE: CASE EVENT DATE: 20160101
